FAERS Safety Report 8316021 (Version 2)
Quarter: 2012Q4

REPORT INFORMATION
  Report Type: 
  Country: US (occurrence: US)
  Receive Date: 20111229
  Receipt Date: 20120919
  Transmission Date: 20130627
  Serious: Yes (Hospitalization)
  Sender: FDA-Public Use
  Company Number: US-GLAXOSMITHKLINE-A0818001A

PATIENT
  Sex: Female
  Weight: 125 kg

DRUGS (1)
  1. AVANDIA [Suspect]
     Indication: TYPE 2 DIABETES MELLITUS
     Route: 048

REACTIONS (3)
  - Bundle branch block right [Not Recovered/Not Resolved]
  - Coronary artery disease [Unknown]
  - Condition aggravated [Unknown]
